FAERS Safety Report 7433736-9 (Version None)
Quarter: 2011Q2

REPORT INFORMATION
  Report Type: 
  Country: None (occurrence: None)
  Receive Date: 20110424
  Receipt Date: 20110419
  Transmission Date: 20111010
  Serious: No
  Sender: FDA-Public Use
  Company Number: US-B.I. PHARMACEUTICALS,INC./RIDGEFIELD-2011-BP-03026BP

PATIENT
  Age: 86 Year
  Sex: Female

DRUGS (7)
  1. PRADAXA [Suspect]
     Indication: ATRIAL FIBRILLATION
     Dosage: 300 MG
     Route: 048
     Dates: start: 20110122
  2. VITAMIN TAB [Concomitant]
     Dosage: 0.75 MG
  3. LISINOPRIL [Concomitant]
     Dosage: 40 MG
  4. SIMVASTATIN [Concomitant]
     Dosage: 40 MG
  5. SYNTHROID [Concomitant]
     Dosage: 0.75 MG
  6. PEPCID [Concomitant]
     Dosage: 20 MG
  7. SPIRONOLACTONE [Concomitant]
     Dosage: 25 MG

REACTIONS (3)
  - ARTHRALGIA [None]
  - RECTAL HAEMORRHAGE [None]
  - BURNING SENSATION [None]
